FAERS Safety Report 9819704 (Version 1)
Quarter: 2014Q1

REPORT INFORMATION
  Report Type: Spontaneous
  Country: US (occurrence: US)
  Receive Date: 20140115
  Receipt Date: 20140115
  Transmission Date: 20141002
  Serious: No
  Sender: FDA-Public Use
  Company Number: US-ALLERGAN-1311345US

PATIENT
  Sex: Female

DRUGS (3)
  1. PRED FORTE [Suspect]
     Indication: PRODUCT USED FOR UNKNOWN INDICATION
     Dosage: 1 DROP A DAY
     Route: 047
  2. PRED FORTE [Suspect]
     Dosage: 2 DROPS A DAY
     Route: 047
  3. PRED FORTE [Suspect]
     Dosage: 4 DROPS A DAY
     Route: 047

REACTIONS (1)
  - Dysgeusia [Not Recovered/Not Resolved]
